FAERS Safety Report 16317229 (Version 3)
Quarter: 2021Q2

REPORT INFORMATION
  Report Type: Spontaneous
  Country: US (occurrence: US)
  Receive Date: 20190515
  Receipt Date: 20210623
  Transmission Date: 20210716
  Serious: No
  Sender: FDA-Public Use
  Company Number: US-SA-2019SA129949

PATIENT
  Age: 59 Year
  Sex: Male
  Weight: 118.82 kg

DRUGS (24)
  1. KEVZARA [Suspect]
     Active Substance: SARILUMAB
     Dosage: 200 MG, QOW, AS DIRECTED
     Route: 058
     Dates: start: 2018
  2. LORAZEPAM. [Concomitant]
     Active Substance: LORAZEPAM
  3. IBUPROFEN. [Concomitant]
     Active Substance: IBUPROFEN
  4. MULTIPLE VITAMINS [Concomitant]
     Active Substance: VITAMINS
  5. ALPRAZOLAM. [Concomitant]
     Active Substance: ALPRAZOLAM
  6. ACETAMINOPHEN. [Concomitant]
     Active Substance: ACETAMINOPHEN
  7. SOMA [Concomitant]
     Active Substance: CARISOPRODOL
  8. PANTOPRAZOLE SODIUM. [Concomitant]
     Active Substance: PANTOPRAZOLE SODIUM
  9. ATORVASTATIN CALCIUM. [Concomitant]
     Active Substance: ATORVASTATIN CALCIUM
  10. LISINOPRIL. [Concomitant]
     Active Substance: LISINOPRIL
  11. CHLORTHALIDONE. [Concomitant]
     Active Substance: CHLORTHALIDONE
  12. AMBIEN [Concomitant]
     Active Substance: ZOLPIDEM TARTRATE
  13. EPINEPHRINE. [Concomitant]
     Active Substance: EPINEPHRINE
  14. DIPHENHYDRAMINE. [Concomitant]
     Active Substance: DIPHENHYDRAMINE
  15. LEFLUNOMIDE. [Concomitant]
     Active Substance: LEFLUNOMIDE
  16. KEVZARA [Suspect]
     Active Substance: SARILUMAB
     Indication: RHEUMATOID ARTHRITIS
     Dosage: 200 MG, QW
     Route: 058
  17. PENNSAID [Concomitant]
     Active Substance: DICLOFENAC SODIUM
  18. OXYCODONE AND ACETAMINOPHEN [Concomitant]
     Active Substance: ACETAMINOPHEN\OXYCODONE HYDROCHLORIDE
  19. IBUPROFEN. [Concomitant]
     Active Substance: IBUPROFEN
  20. LEVITRA [Concomitant]
     Active Substance: VARDENAFIL HYDROCHLORIDE
  21. VITAMINS NOS [Concomitant]
     Active Substance: VITAMINS
  22. HIZENTRA [Suspect]
     Active Substance: HUMAN IMMUNOGLOBULIN G
  23. LIDOCAINE/PRILOCAINE [Concomitant]
     Active Substance: LIDOCAINE\PRILOCAINE
  24. NORCO [Concomitant]
     Active Substance: ACETAMINOPHEN\HYDROCODONE BITARTRATE

REACTIONS (4)
  - Blood pressure increased [Unknown]
  - Injection site infection [Not Recovered/Not Resolved]
  - Product dose omission issue [Unknown]
  - Product prescribing error [Unknown]
